FAERS Safety Report 6411295-7 (Version None)
Quarter: 2009Q4

REPORT INFORMATION
  Report Type: 
  Country: None (occurrence: None)
  Receive Date: 20091023
  Receipt Date: 20091013
  Transmission Date: 20100525
  Serious: Yes (Hospitalization, Other)
  Sender: FDA-Public Use
  Company Number: GB-PFIZER INC-2009282366

PATIENT
  Age: 23 Year

DRUGS (4)
  1. SOMATROPIN [Suspect]
     Indication: HYPOPITUITARISM
     Dosage: 0.40 MG, 1X/DAY
     Dates: start: 20010705, end: 20070517
  2. HYDROCORTISONE [Concomitant]
     Dosage: 20 MG, 1X/DAY
  3. LEVOTHYROXINE SODIUM [Concomitant]
     Dosage: 75 UG, 1X/DAY
  4. TESTOSTERONE [Concomitant]
     Dosage: 1000 MG, EVERY 3 MONTHS

REACTIONS (1)
  - CRANIOPHARYNGIOMA [None]
